FAERS Safety Report 18157564 (Version 3)
Quarter: 2020Q3

REPORT INFORMATION
  Report Type: Spontaneous
  Country: US (occurrence: US)
  Receive Date: 20200817
  Receipt Date: 20200917
  Transmission Date: 20201103
  Serious: Yes (Life-Threatening, Hospitalization, Other)
  Sender: FDA-Public Use
  Company Number: US-ELI_LILLY_AND_COMPANY-US202008003533

PATIENT
  Weight: 2.3 kg

DRUGS (18)
  1. LEVOTHYROXINE. [Suspect]
     Active Substance: LEVOTHYROXINE
     Indication: HYPOTHYROIDISM
     Dosage: UNK, UNKNOWN
     Route: 064
     Dates: end: 20170828
  2. HUMALOG [Suspect]
     Active Substance: INSULIN LISPRO
     Indication: GESTATIONAL DIABETES
     Dosage: UNK, UNKNOWN
     Route: 064
     Dates: end: 20170828
  3. BUSPAR [Suspect]
     Active Substance: BUSPIRONE HYDROCHLORIDE
     Indication: DEPRESSION
     Dosage: UNK, UNKNOWN
     Route: 064
     Dates: end: 20170828
  4. REMERON [Suspect]
     Active Substance: MIRTAZAPINE
     Indication: DEPRESSION
     Dosage: UNK, UNKNOWN
     Route: 064
     Dates: end: 20170828
  5. PROGESTERONE. [Suspect]
     Active Substance: PROGESTERONE
     Indication: INFERTILITY FEMALE
     Dosage: UNK, UNKNOWN
     Route: 064
  6. HUMULIN R [Suspect]
     Active Substance: INSULIN HUMAN
     Indication: GESTATIONAL DIABETES
     Dosage: UNK, UNKNOWN
     Route: 064
     Dates: end: 20170828
  7. BUSPAR [Suspect]
     Active Substance: BUSPIRONE HYDROCHLORIDE
     Indication: DEPRESSION
     Dosage: UNK, UNKNOWN
     Route: 064
     Dates: end: 20170828
  8. LEVOTHYROXINE. [Suspect]
     Active Substance: LEVOTHYROXINE
     Indication: HYPOTHYROIDISM
     Dosage: UNK, UNKNOWN
     Route: 064
     Dates: end: 20170828
  9. HUMULIN R [Suspect]
     Active Substance: INSULIN HUMAN
     Indication: GESTATIONAL DIABETES
     Dosage: UNK, UNKNOWN
     Route: 064
     Dates: end: 20170828
  10. ESTRADIOL. [Suspect]
     Active Substance: ESTRADIOL
     Indication: INFERTILITY FEMALE
     Dosage: UNK, UNKNOWN
     Route: 064
  11. PROZAC [Suspect]
     Active Substance: FLUOXETINE HYDROCHLORIDE
     Indication: DEPRESSION
     Dosage: UNK, UNKNOWN
     Route: 064
     Dates: end: 20170828
  12. HUMALOG [Suspect]
     Active Substance: INSULIN LISPRO
     Indication: GESTATIONAL DIABETES
     Dosage: UNK, UNKNOWN
     Route: 064
     Dates: end: 20170828
  13. PROGESTERONE. [Suspect]
     Active Substance: PROGESTERONE
     Indication: INFERTILITY FEMALE
     Dosage: UNK, UNKNOWN
     Route: 064
  14. ABILIFY [Suspect]
     Active Substance: ARIPIPRAZOLE
     Indication: DEPRESSION
     Dosage: 5 MG, UNKNOWN
     Route: 064
     Dates: end: 20170828
  15. ABILIFY [Suspect]
     Active Substance: ARIPIPRAZOLE
     Indication: DEPRESSION
     Dosage: 5 MG, UNKNOWN
     Route: 064
     Dates: end: 20170828
  16. ESTRADIOL. [Suspect]
     Active Substance: ESTRADIOL
     Indication: INFERTILITY FEMALE
     Dosage: UNK, UNKNOWN
     Route: 064
  17. PROZAC [Suspect]
     Active Substance: FLUOXETINE HYDROCHLORIDE
     Indication: DEPRESSION
     Dosage: UNK, UNKNOWN
     Route: 064
     Dates: end: 20170828
  18. REMERON [Suspect]
     Active Substance: MIRTAZAPINE
     Indication: DEPRESSION
     Dosage: UNK, UNKNOWN
     Route: 064
     Dates: end: 20170828

REACTIONS (8)
  - Heart rate decreased [Recovered/Resolved]
  - Foetal exposure during pregnancy [Unknown]
  - Neonatal respiratory distress [Recovered/Resolved]
  - Transient tachypnoea of the newborn [Recovered/Resolved]
  - Dyspnoea [Recovered/Resolved]
  - Low birth weight baby [Unknown]
  - Premature baby [Recovered/Resolved]
  - Breech presentation [Recovered/Resolved]

NARRATIVE: CASE EVENT DATE: 201708
